FAERS Safety Report 19422319 (Version 2)
Quarter: 2021Q3

REPORT INFORMATION
  Report Type: Spontaneous
  Country: CA (occurrence: CA)
  Receive Date: 20210616
  Receipt Date: 20210728
  Transmission Date: 20211014
  Serious: Yes (Disabling)
  Sender: FDA-Public Use
  Company Number: CA-ROCHE-2843680

PATIENT
  Sex: Female

DRUGS (52)
  1. RITUXIMAB. [Suspect]
     Active Substance: RITUXIMAB
     Indication: RHEUMATOID ARTHRITIS
     Route: 042
  2. DESOXIMETASONE. [Suspect]
     Active Substance: DESOXIMETASONE
     Route: 048
  3. KEVZARA [Suspect]
     Active Substance: SARILUMAB
     Indication: RHEUMATOID ARTHRITIS
     Route: 058
  4. SIMPONI [Suspect]
     Active Substance: GOLIMUMAB
     Indication: RHEUMATOID ARTHRITIS
     Route: 058
  5. SALAZOPYRINA [Concomitant]
     Active Substance: SULFASALAZINE
  6. ACTEMRA [Suspect]
     Active Substance: TOCILIZUMAB
     Indication: RHEUMATOID ARTHRITIS
     Route: 065
  7. CETIRIZINE HYDROCHLORIDE;IBUPROFEN;PHENYLEPHRINE HYDROCHLORIDE [Suspect]
     Active Substance: CETIRIZINE\IBUPROFEN\PHENYLEPHRINE
     Route: 065
  8. CORTISONE ACETATE. [Suspect]
     Active Substance: CORTISONE ACETATE
     Indication: RHEUMATOID ARTHRITIS
     Route: 065
  9. HYDROXYCHLOROQUINE SULFATE. [Suspect]
     Active Substance: HYDROXYCHLOROQUINE SULFATE
     Indication: RHEUMATOID ARTHRITIS
     Route: 065
  10. HYDROXYCHLOROQUINE SULFATE. [Suspect]
     Active Substance: HYDROXYCHLOROQUINE SULFATE
     Route: 048
  11. CETIRIZINE HYDROCHLORIDE. [Suspect]
     Active Substance: CETIRIZINE HYDROCHLORIDE
     Route: 065
  12. HYDROXYCHLOROQUINE SULFATE. [Suspect]
     Active Substance: HYDROXYCHLOROQUINE SULFATE
     Route: 048
  13. ORENCIA [Suspect]
     Active Substance: ABATACEPT
     Route: 058
  14. REACTINE (CANADA) [Suspect]
     Active Substance: CETIRIZINE HYDROCHLORIDE
     Indication: RHEUMATOID ARTHRITIS
     Route: 065
  15. SULFASALAZINE. [Concomitant]
     Active Substance: SULFASALAZINE
  16. CIMZIA [Suspect]
     Active Substance: CERTOLIZUMAB PEGOL
     Indication: RHEUMATOID ARTHRITIS
     Route: 058
  17. ENBREL [Suspect]
     Active Substance: ETANERCEPT
     Indication: RHEUMATOID ARTHRITIS
     Route: 058
  18. FOSAMAX [Suspect]
     Active Substance: ALENDRONATE SODIUM
     Route: 065
  19. REACTINE (CANADA) [Suspect]
     Active Substance: CETIRIZINE HYDROCHLORIDE
     Route: 065
  20. CORTISONE ACETATE. [Suspect]
     Active Substance: CORTISONE ACETATE
     Route: 065
  21. FOLIC ACID. [Suspect]
     Active Substance: FOLIC ACID
     Indication: RHEUMATOID ARTHRITIS
     Route: 065
  22. HYDROXYCHLOROQUINE SULFATE. [Suspect]
     Active Substance: HYDROXYCHLOROQUINE SULFATE
     Route: 065
  23. HYDROXYCHLOROQUINE SULFATE. [Suspect]
     Active Substance: HYDROXYCHLOROQUINE SULFATE
     Route: 065
  24. LEFLUNOMIDE. [Suspect]
     Active Substance: LEFLUNOMIDE
     Indication: PRODUCT USED FOR UNKNOWN INDICATION
     Route: 065
  25. METHOTREXATE. [Suspect]
     Active Substance: METHOTREXATE
     Route: 048
  26. PHTHALYLSULFATHIAZOLE [Suspect]
     Active Substance: PHTHALYLSULFATHIAZOLE
     Route: 065
  27. ACETAMINOPHEN. [Suspect]
     Active Substance: ACETAMINOPHEN
     Indication: RHEUMATOID ARTHRITIS
     Route: 065
  28. CETIRIZINE HYDROCHLORIDE. [Suspect]
     Active Substance: CETIRIZINE HYDROCHLORIDE
     Indication: RHEUMATOID ARTHRITIS
     Route: 065
  29. CETIRIZINE HYDROCHLORIDE;IBUPROFEN;PHENYLEPHRINE HYDROCHLORIDE [Suspect]
     Active Substance: CETIRIZINE\IBUPROFEN\PHENYLEPHRINE
     Indication: RHEUMATOID ARTHRITIS
     Route: 065
  30. DESOXIMETASONE. [Suspect]
     Active Substance: DESOXIMETASONE
     Indication: RHEUMATOID ARTHRITIS
     Route: 058
  31. GOLIMUMAB [Suspect]
     Active Substance: GOLIMUMAB
     Indication: PRODUCT USED FOR UNKNOWN INDICATION
     Route: 065
  32. HUMIRA [Suspect]
     Active Substance: ADALIMUMAB
     Route: 065
  33. ORENCIA [Suspect]
     Active Substance: ABATACEPT
     Indication: RHEUMATOID ARTHRITIS
     Route: 042
  34. PREDNISONE. [Suspect]
     Active Substance: PREDNISONE
     Indication: PRODUCT USED FOR UNKNOWN INDICATION
     Route: 065
  35. PSEUDOEPHEDRINE HYDROCHLORIDE. [Suspect]
     Active Substance: PSEUDOEPHEDRINE HYDROCHLORIDE
     Indication: RHEUMATOID ARTHRITIS
     Route: 065
  36. REMICADE [Suspect]
     Active Substance: INFLIXIMAB
     Indication: RHEUMATOID ARTHRITIS
     Dosage: POWDER FOR SOLUTION INTRAVENOUS
     Route: 042
  37. APO?PREDNISONE [Suspect]
     Active Substance: PREDNISONE
     Indication: PRODUCT USED FOR UNKNOWN INDICATION
     Route: 065
  38. DICLOFENAC [Suspect]
     Active Substance: DICLOFENAC
     Indication: PRODUCT USED FOR UNKNOWN INDICATION
     Route: 065
  39. HUMIRA [Suspect]
     Active Substance: ADALIMUMAB
     Indication: RHEUMATOID ARTHRITIS
     Route: 058
  40. METHOTREXATE. [Suspect]
     Active Substance: METHOTREXATE
     Indication: RHEUMATOID ARTHRITIS
     Route: 065
  41. METHOTREXATE. [Suspect]
     Active Substance: METHOTREXATE
     Route: 048
  42. STELARA [Suspect]
     Active Substance: USTEKINUMAB
     Indication: PRODUCT USED FOR UNKNOWN INDICATION
     Route: 058
  43. SULFASALAZINE. [Suspect]
     Active Substance: SULFASALAZINE
     Indication: RHEUMATOID ARTHRITIS
     Route: 065
  44. XELJANZ [Suspect]
     Active Substance: TOFACITINIB CITRATE
     Indication: RHEUMATOID ARTHRITIS
     Route: 065
  45. ARAVA [Suspect]
     Active Substance: LEFLUNOMIDE
     Indication: RHEUMATOID ARTHRITIS
     Route: 048
  46. FOSAMAX [Suspect]
     Active Substance: ALENDRONATE SODIUM
     Indication: RHEUMATOID ARTHRITIS
     Route: 048
  47. HYDROXYCHLOROQUINE SULFATE. [Suspect]
     Active Substance: HYDROXYCHLOROQUINE SULFATE
     Route: 058
  48. LEFLUNOMIDE. [Suspect]
     Active Substance: LEFLUNOMIDE
     Route: 048
  49. PHTHALYLSULFATHIAZOLE [Suspect]
     Active Substance: PHTHALYLSULFATHIAZOLE
     Indication: RHEUMATOID ARTHRITIS
     Route: 065
  50. TOPICORT [Suspect]
     Active Substance: DESOXIMETASONE
     Indication: RHEUMATOID ARTHRITIS
     Route: 003
  51. XELJANZ [Suspect]
     Active Substance: TOFACITINIB CITRATE
     Route: 065
  52. ACETAMINOPHEN;CAFFEINE;CODEINE [Concomitant]

REACTIONS (33)
  - Discomfort [Not Recovered/Not Resolved]
  - Duodenal ulcer perforation [Not Recovered/Not Resolved]
  - Hand deformity [Not Recovered/Not Resolved]
  - Contraindicated product administered [Unknown]
  - Hepatic enzyme increased [Not Recovered/Not Resolved]
  - Rheumatoid factor positive [Not Recovered/Not Resolved]
  - Swelling [Not Recovered/Not Resolved]
  - Treatment failure [Not Recovered/Not Resolved]
  - Wound [Not Recovered/Not Resolved]
  - Abdominal discomfort [Not Recovered/Not Resolved]
  - Knee arthroplasty [Not Recovered/Not Resolved]
  - Pemphigus [Not Recovered/Not Resolved]
  - Rheumatoid arthritis [Not Recovered/Not Resolved]
  - Arthropathy [Not Recovered/Not Resolved]
  - Maternal exposure during pregnancy [Unknown]
  - Alopecia [Not Recovered/Not Resolved]
  - Condition aggravated [Not Recovered/Not Resolved]
  - Drug intolerance [Not Recovered/Not Resolved]
  - Joint swelling [Not Recovered/Not Resolved]
  - Systemic lupus erythematosus [Not Recovered/Not Resolved]
  - Anti-cyclic citrullinated peptide antibody positive [Not Recovered/Not Resolved]
  - Fatigue [Not Recovered/Not Resolved]
  - Helicobacter infection [Not Recovered/Not Resolved]
  - Hip arthroplasty [Not Recovered/Not Resolved]
  - Hypersensitivity [Not Recovered/Not Resolved]
  - Infusion related reaction [Not Recovered/Not Resolved]
  - Pain [Not Recovered/Not Resolved]
  - Rash [Not Recovered/Not Resolved]
  - Synovitis [Not Recovered/Not Resolved]
  - Glossodynia [Not Recovered/Not Resolved]
  - Product use issue [Unknown]
  - Drug ineffective [Not Recovered/Not Resolved]
  - Pericarditis [Not Recovered/Not Resolved]
